FAERS Safety Report 9908640 (Version 4)
Quarter: 2014Q2

REPORT INFORMATION
  Report Type: Report from Study
  Country: PT (occurrence: PT)
  Receive Date: 20140219
  Receipt Date: 20140408
  Transmission Date: 20141212
  Serious: Yes (Hospitalization)
  Sender: FDA-Public Use
  Company Number: PT-ROCHE-1340823

PATIENT
  Age: 51 Year
  Sex: Female
  Weight: 83 kg

DRUGS (2)
  1. TRASTUZUMAB EMTANSINE [Suspect]
     Indication: BREAST CANCER METASTATIC
     Dosage: DOSE PER PROTOCOL 3.6MG/KG EVERY 3 WEEKS: LAST DOSE PRIOR TO SEPSIS: 14/JAN/2014.
     Route: 042
     Dates: start: 20130416
  2. LISINOPRIL [Concomitant]
     Route: 065
     Dates: start: 201001

REACTIONS (1)
  - Sepsis [Recovered/Resolved]
